FAERS Safety Report 5599491-2 (Version None)
Quarter: 2007Q4

REPORT INFORMATION
  Report Type: 
  Country: None (occurrence: None)
  Receive Date: 20071231
  Receipt Date: 20071130
  Transmission Date: 20080405
  Serious: Yes (Other)
  Sender: FDA-Public Use
  Company Number: 2007090621

PATIENT
  Age: 67 Year
  Sex: Male
  Weight: 9545 kg

DRUGS (1)
  1. FLUCONAZOLE [Suspect]
     Indication: FUNGAL INFECTION
     Dosage: 200 MG (100 MG, 2 IN 1 D)
     Dates: start: 20070830, end: 20070831

REACTIONS (1)
  - RASH GENERALISED [None]
